FAERS Safety Report 5683534-1 (Version None)
Quarter: 2008Q1

REPORT INFORMATION
  Report Type: 
  Country: None (occurrence: None)
  Receive Date: 20080326
  Receipt Date: 20080310
  Transmission Date: 20080703
  Serious: Yes (Hospitalization)
  Sender: FDA-Public Use
  Company Number: 2008EU005408

PATIENT
  Age: 8 Year
  Sex: Male

DRUGS (6)
  1. PROGRAF [Suspect]
     Indication: LIVER TRANSPLANT
     Dosage: 4.5 MG, BID, ORAL
     Route: 048
     Dates: start: 20001214, end: 20040301
  2. CELLCEPT [Suspect]
     Indication: LIVER TRANSPLANT
     Dosage: 200 MG
     Dates: start: 20001215, end: 20020821
  3. ASPEGIC (ACETYLSALICYLCATE LYSINE) [Concomitant]
  4. CORTICOSTEROID NOS (CORTICOSTEROID NOS) [Concomitant]
  5. IMMUNOGLOBULINS (IMMUNOGLOBULINS) [Concomitant]
  6. RITUXIMAB (RITUXIMAB) [Concomitant]

REACTIONS (5)
  - CONDITION AGGRAVATED [None]
  - ERYTHEMA INFECTIOSUM [None]
  - EVANS SYNDROME [None]
  - MIGRAINE [None]
  - PANCYTOPENIA [None]
